FAERS Safety Report 5699744-3 (Version None)
Quarter: 2008Q2

REPORT INFORMATION
  Report Type: 
  Country: None (occurrence: None)
  Receive Date: 20080410
  Receipt Date: 20080401
  Transmission Date: 20081010
  Serious: Yes (Other)
  Sender: FDA-Public Use
  Company Number: PHHY2008JP03856

PATIENT
  Age: 18 Year
  Sex: Male
  Weight: 81 kg

DRUGS (3)
  1. CEFDITOREN PIVOXIL [Concomitant]
     Dosage: 900 MG
     Route: 048
  2. METOCLOPRAMIDE [Concomitant]
     Dosage: 10 MG
     Route: 065
  3. DICLOFENAC SODIUM [Suspect]
     Indication: ANALGESIA
     Dosage: 50 MG
     Route: 054

REACTIONS (5)
  - CEREBROVASCULAR DISORDER [None]
  - HEADACHE [None]
  - INTRACRANIAL VENOUS SINUS THROMBOSIS [None]
  - NAUSEA [None]
  - VOMITING [None]
